FAERS Safety Report 6602296-4 (Version None)
Quarter: 2010Q1

REPORT INFORMATION
  Report Type: 
  Country: None (occurrence: None)
  Receive Date: 20100225
  Receipt Date: 20100211
  Transmission Date: 20100710
  Serious: Yes (Hospitalization)
  Sender: FDA-Public Use
  Company Number: HK-MYLANLABS-2010S1002007

PATIENT
  Age: 89 Year
  Sex: Male

DRUGS (4)
  1. INDAPAMIDE [Suspect]
     Indication: SUICIDE ATTEMPT
     Dosage: INGESTED TWO MOUTHFULS OF DRUGS IN TOTAL
     Route: 048
  2. METHYLDOPA [Suspect]
     Indication: SUICIDE ATTEMPT
     Dosage: INGESTED TWO MOUTHFULS OF DRUGS IN TOTAL
     Route: 048
  3. THEOPHYLLINE [Suspect]
     Indication: SUICIDE ATTEMPT
     Dosage: SUSTAINED RELEASE; INGESTED TWO MOUTHFULS OF DRUGS IN TOTAL
     Route: 048
  4. PARACETAMOL [Concomitant]
     Indication: SUICIDE ATTEMPT
     Dosage: INGESTED TWO MOUTHFULS OF DRUGS IN TOTAL
     Route: 048

REACTIONS (6)
  - COMA [None]
  - HYPOKALAEMIA [None]
  - HYPOTENSION [None]
  - INTENTIONAL OVERDOSE [None]
  - POLYURIA [None]
  - SINUS TACHYCARDIA [None]
